FAERS Safety Report 18890540 (Version 2)
Quarter: 2021Q2

REPORT INFORMATION
  Report Type: Spontaneous
  Country: GB (occurrence: GB)
  Receive Date: 20210214
  Receipt Date: 20210405
  Transmission Date: 20210717
  Serious: Yes (Other)
  Sender: FDA-Public Use
  Company Number: GB-SA-2021SA045751

PATIENT
  Age: 51 Year
  Sex: Male

DRUGS (2)
  1. AZATHIOPRINE. [Concomitant]
     Active Substance: AZATHIOPRINE
     Dosage: UNK
  2. DUPIXENT [Suspect]
     Active Substance: DUPILUMAB
     Indication: DERMATITIS ATOPIC
     Dosage: UNK
     Dates: start: 201904

REACTIONS (3)
  - Non-Hodgkin^s lymphoma [Unknown]
  - Diabetes mellitus [Unknown]
  - Hodgkin^s disease lymphocyte predominance type recurrent [Unknown]

NARRATIVE: CASE EVENT DATE: 202008
